FAERS Safety Report 10585984 (Version 1)
Quarter: 2014Q4

REPORT INFORMATION
  Report Type: Spontaneous
  Country: FR (occurrence: FR)
  Receive Date: 20141114
  Receipt Date: 20141114
  Transmission Date: 20150529
  Serious: Yes (Hospitalization, Other)
  Sender: FDA-Public Use
  Company Number: FR-ASTRAZENECA-2014SE85029

PATIENT
  Age: 33470 Day
  Sex: Female

DRUGS (6)
  1. TENORMIN [Suspect]
     Active Substance: ATENOLOL
     Route: 048
     Dates: end: 20140714
  2. RAMIPRIL. [Concomitant]
     Active Substance: RAMIPRIL
     Route: 048
  3. DISCOTRINE [Concomitant]
     Active Substance: NITROGLYCERIN
     Route: 058
  4. LEVOTHYROX [Concomitant]
     Active Substance: LEVOTHYROXINE
     Route: 048
  5. KARDEGIC [Concomitant]
     Active Substance: ASPIRIN LYSINE
     Route: 048
  6. LASILIX [Concomitant]
     Active Substance: FUROSEMIDE
     Route: 048

REACTIONS (5)
  - Sinus arrest [Unknown]
  - Sinus bradycardia [Recovered/Resolved]
  - Troponin increased [Unknown]
  - Overdose [Recovered/Resolved]
  - Rhythm idioventricular [Unknown]

NARRATIVE: CASE EVENT DATE: 20140711
